FAERS Safety Report 7428884-3 (Version None)
Quarter: 2011Q2

REPORT INFORMATION
  Report Type: 
  Country: None (occurrence: None)
  Receive Date: 20110421
  Receipt Date: 20110329
  Transmission Date: 20111010
  Serious: No
  Sender: FDA-Public Use
  Company Number: US-B.I. PHARMACEUTICALS,INC./RIDGEFIELD-2011-BP-09530BP

PATIENT
  Age: 85 Year
  Sex: Female

DRUGS (6)
  1. DIGOXIN [Concomitant]
     Indication: ATRIAL FIBRILLATION
  2. POTASSIUM [Concomitant]
     Indication: SUPPLEMENTATION THERAPY
  3. HYDROCORTISONE CREAM [Concomitant]
     Indication: HAEMORRHOIDS
  4. TOPROL-XL [Concomitant]
     Indication: ATRIAL FIBRILLATION
  5. PRADAXA [Suspect]
     Indication: ATRIAL FIBRILLATION
     Dosage: 150 MG
     Route: 048
     Dates: start: 20110101, end: 20110210
  6. FUROSEMIDE [Concomitant]

REACTIONS (4)
  - VULVOVAGINAL PAIN [None]
  - HAEMORRHOIDAL HAEMORRHAGE [None]
  - VULVOVAGINAL PRURITUS [None]
  - VAGINAL DISCHARGE [None]
